FAERS Safety Report 4523504-X (Version None)
Quarter: 2004Q4

REPORT INFORMATION
  Report Type: 
  Country: None (occurrence: None)
  Receive Date: 20041117
  Receipt Date: 20040726
  Transmission Date: 20050328
  Serious: Yes (Life-Threatening, Hospitalization)
  Sender: FDA-Public Use
  Company Number: DE-JNJFOC-20040707463

PATIENT
  Age: 66 Year
  Sex: Male

DRUGS (11)
  1. LEVOFLOXACIN [Suspect]
     Indication: PNEUMONIA
     Dosage: INTRAVENOUS
     Route: 042
     Dates: start: 20030107, end: 20030109
  2. LEVOFLOXACIN [Suspect]
     Indication: PNEUMONIA
     Dosage: ORAL
     Route: 048
     Dates: start: 20030110, end: 20030114
  3. OSCAL (CALCIUM CARBONATE) [Concomitant]
  4. VICODIN [Concomitant]
  5. ALBUTEROL [Concomitant]
  6. ATIVAN [Concomitant]
  7. MIACALCIN [Concomitant]
  8. DURAGESIC [Concomitant]
  9. ATROVENT [Concomitant]
  10. PROVENTIL [Concomitant]
  11. SOLU-MEDROL [Concomitant]

REACTIONS (2)
  - BACK PAIN [None]
  - CHRONIC OBSTRUCTIVE AIRWAYS DISEASE EXACERBATED [None]
